FAERS Safety Report 10991459 (Version 2)
Quarter: 2015Q2

REPORT INFORMATION
  Report Type: Report from Study
  Country: JP (occurrence: JP)
  Receive Date: 20150406
  Receipt Date: 20150407
  Transmission Date: 20150821
  Serious: Yes (Hospitalization)
  Sender: FDA-Public Use
  Company Number: JP-TEVA-539792USA

PATIENT
  Age: 15 Year
  Sex: Female
  Weight: 53.4 kg

DRUGS (10)
  1. GLUCOSE [Concomitant]
     Active Substance: DEXTROSE
     Route: 042
     Dates: start: 20140510, end: 20140511
  2. METALCAPTASE [Concomitant]
     Active Substance: PENICILLAMINE
     Indication: HEPATO-LENTICULAR DEGENERATION
     Dosage: 1400 MILLIGRAM DAILY;
     Route: 048
  3. GALZIN [Suspect]
     Active Substance: ZINC ACETATE
     Dosage: 150 MILLIGRAM DAILY;
     Route: 048
     Dates: start: 20140315, end: 20150326
  4. RINDERON V [Concomitant]
     Active Substance: BETAMETHASONE VALERATE
     Route: 023
  5. METALCAPTASE [Concomitant]
     Active Substance: PENICILLAMINE
     Dosage: 1200 MILLIGRAM DAILY;
     Route: 048
     Dates: start: 20140504, end: 20141118
  6. METALCAPTASE [Concomitant]
     Active Substance: PENICILLAMINE
     Dosage: 1200 MILLIGRAM DAILY;
     Route: 048
     Dates: start: 20140510, end: 20140512
  7. GALZIN [Suspect]
     Active Substance: ZINC ACETATE
     Dosage: 200 MILLIGRAM DAILY;
     Route: 048
     Dates: start: 20140312, end: 20140514
  8. HIRUDOID [Concomitant]
     Active Substance: GLYCOSAMINOGLYCANS
     Route: 023
  9. SANDIMMUNE [Concomitant]
     Active Substance: CYCLOSPORINE
     Route: 042
     Dates: start: 20140510, end: 20140511
  10. GALZIN [Suspect]
     Active Substance: ZINC ACETATE
     Indication: HEPATO-LENTICULAR DEGENERATION
     Route: 048
     Dates: start: 20140511

REACTIONS (1)
  - Pancreatitis [Not Recovered/Not Resolved]
